FAERS Safety Report 18024232 (Version 2)
Quarter: 2020Q3

REPORT INFORMATION
  Report Type: Spontaneous
  Country: US (occurrence: US)
  Receive Date: 20200715
  Receipt Date: 20200806
  Transmission Date: 20201103
  Serious: Yes (Other)
  Sender: FDA-Public Use
  Company Number: US-BIOGEN-2020BI00897292

PATIENT
  Age: 21 Year
  Sex: Female

DRUGS (1)
  1. TECFIDERA [Suspect]
     Active Substance: DIMETHYL FUMARATE
     Indication: MULTIPLE SCLEROSIS
     Route: 048
     Dates: start: 202006, end: 20200716

REACTIONS (4)
  - Dyspnoea [Unknown]
  - Anaphylactic shock [Recovered/Resolved]
  - Dysphagia [Unknown]
  - Flushing [Unknown]

NARRATIVE: CASE EVENT DATE: 20200709
